FAERS Safety Report 4918588-0 (Version None)
Quarter: 2006Q1

REPORT INFORMATION
  Report Type: 
  Country: None (occurrence: None)
  Receive Date: 20060221
  Receipt Date: 20060221
  Transmission Date: 20060701
  Serious: Yes (Hospitalization)
  Sender: FDA-Public Use
  Company Number: None

PATIENT
  Age: 50 Year
  Sex: Female
  Weight: 59.8748 kg

DRUGS (7)
  1. TAXOTERE [Suspect]
     Indication: BREAST CANCER
     Dosage: 100 MG/M2 IV
     Route: 042
     Dates: start: 20051121
  2. TAXOTERE [Suspect]
     Indication: BREAST CANCER
     Dosage: 100 MG/M2 IV
     Route: 042
     Dates: start: 20051205
  3. TAXOTERE [Suspect]
     Indication: BREAST CANCER
     Dosage: 100 MG/M2 IV
     Route: 042
     Dates: start: 20051219
  4. TAXOTERE [Suspect]
     Indication: BREAST CANCER
     Dosage: 100 MG/M2 IV
     Route: 042
     Dates: start: 20060103
  5. UNIRETIC [Concomitant]
  6. LIPITOR [Concomitant]
  7. DECADRON WITH CHEMO (TAXOTERE) [Concomitant]

REACTIONS (1)
  - CATHETER RELATED INFECTION [None]
